FAERS Safety Report 9032970 (Version 1)
Quarter: 2013Q1

REPORT INFORMATION
  Report Type: Spontaneous
  Country: CA (occurrence: CA)
  Receive Date: 20130128
  Receipt Date: 20130128
  Transmission Date: 20140127
  Serious: Yes (Other)
  Sender: FDA-Public Use
  Company Number: CA-JNJFOC-20120608691

PATIENT
  Age: 54 Year
  Sex: Female
  Weight: 54 kg

DRUGS (21)
  1. REMICADE [Suspect]
     Indication: RHEUMATOID ARTHRITIS
     Route: 042
     Dates: start: 201103
  2. HYDROMORPH [Concomitant]
     Route: 065
  3. METOPROLOL [Concomitant]
     Route: 065
  4. FOLIC ACID [Concomitant]
     Route: 065
  5. HYDROCHLOROTHIAZIDE [Concomitant]
     Route: 065
  6. VITAMIN D [Concomitant]
     Route: 065
  7. RAMIPRIL [Concomitant]
     Route: 065
  8. ASA [Concomitant]
     Route: 065
  9. DIGOXIN [Concomitant]
     Route: 065
  10. BUSCOPAN [Concomitant]
     Route: 065
  11. METFORMIN [Concomitant]
     Route: 065
  12. PREDNISONE [Concomitant]
     Route: 065
  13. TRIMEBUTINE [Concomitant]
     Route: 065
  14. RANITIDINE [Concomitant]
     Route: 065
  15. GLICLAZIDE [Concomitant]
     Route: 065
  16. ZOPLICONE [Concomitant]
     Route: 065
  17. POTASSIUM [Concomitant]
     Route: 065
  18. ESTROGEN [Concomitant]
     Route: 065
  19. METHOTREXATE [Concomitant]
     Route: 065
  20. CALCIUM [Concomitant]
     Route: 065
  21. FLEXERIL [Concomitant]
     Route: 065

REACTIONS (2)
  - Heart rate increased [Unknown]
  - Knee arthroplasty [Recovered/Resolved]
